FAERS Safety Report 5856393-1 (Version None)
Quarter: 2008Q3

REPORT INFORMATION
  Report Type: 
  Country: None (occurrence: None)
  Receive Date: 20080821
  Receipt Date: 20080805
  Transmission Date: 20090109
  Serious: Yes (Hospitalization)
  Sender: FDA-Public Use
  Company Number: JPI-P-003926

PATIENT
  Age: 72 Year
  Sex: Male

DRUGS (14)
  1. FLUVOXAMINE MALEATE [Suspect]
     Indication: DEPRESSION
     Dosage: (50 MG,1 D), ORAL
     Route: 048
     Dates: start: 20080429, end: 20080602
  2. FLUVOXAMINE MALEATE [Suspect]
     Indication: DEPRESSION
     Dosage: (50 MG,1 D), ORAL
     Route: 048
     Dates: start: 20080601
  3. FAMOTIDINE [Suspect]
     Indication: GASTRITIS
     Dosage: (20 MG,1 D), ORAL
     Route: 048
     Dates: start: 20080501, end: 20080602
  4. ZOLPIDEM TARTRATE [Suspect]
     Indication: INSOMNIA
     Dosage: (5 MG,1 D), ORAL
     Route: 048
     Dates: start: 20080507, end: 20080602
  5. CLOPIDOGREL BISULFATE [Suspect]
     Indication: AORTIC STENOSIS
     Dosage: (750 MG,1 D), ORAL
     Route: 048
     Dates: start: 20080417, end: 20080602
  6. CLOPIDOGREL BISULFATE [Suspect]
     Indication: CEREBRAL INFARCTION
     Dosage: (750 MG,1 D), ORAL
     Route: 048
     Dates: start: 20080417, end: 20080602
  7. VALSARTAN [Suspect]
     Indication: HYPERTENSION
     Dosage: (160 MG,1 D), ORAL
     Route: 048
     Dates: start: 20080428, end: 20080602
  8. PHENYTOIN [Suspect]
     Indication: CEREBRAL INFARCTION
     Dosage: (240 MG,1 D), ORAL
     Route: 048
     Dates: start: 20080419, end: 20080602
  9. NIFEDIPINE [Suspect]
     Indication: DEPRESSION
     Dosage: (40 MG,1 D), ORAL
     Route: 048
     Dates: start: 20080501, end: 20080602
  10. RISPERDAL [Concomitant]
  11. TRICHLORMETHIAZIDE [Concomitant]
  12. ACETYLSALICYLIC ACID SRT [Concomitant]
  13. NAFTOPIDIL (NAFTOPIDIL) [Concomitant]
  14. DISTIGMINE BROMIDE (DISTIGMINE BROMIDE) [Concomitant]

REACTIONS (1)
  - AGRANULOCYTOSIS [None]
